FAERS Safety Report 5121885-X (Version None)
Quarter: 2006Q4

REPORT INFORMATION
  Report Type: 
  Country: None (occurrence: None)
  Receive Date: 20061006
  Receipt Date: 20060925
  Transmission Date: 20070319
  Serious: Yes (Hospitalization, Other)
  Sender: FDA-Public Use
  Company Number: GB-MERCK-0609GBR00117

PATIENT
  Age: 35 Year
  Sex: Female

DRUGS (1)
  1. SINGULAIR [Suspect]
     Indication: ASTHMA
     Route: 065

REACTIONS (3)
  - ALLERGIC GRANULOMATOUS ANGIITIS [None]
  - CUSHING'S SYNDROME [None]
  - HIP ARTHROPLASTY [None]
